FAERS Safety Report 24661417 (Version 2)
Quarter: 2024Q4

REPORT INFORMATION
  Report Type: Spontaneous
  Country: BE (occurrence: BE)
  Receive Date: 20241125
  Receipt Date: 20241128
  Transmission Date: 20250115
  Serious: Yes (Life-Threatening, Other)
  Sender: PFIZER
  Company Number: BE-PFIZER INC-202400305253

PATIENT
  Age: 50 Year
  Sex: Male
  Weight: 87.5 kg

DRUGS (4)
  1. GEMCITABINE HYDROCHLORIDE [Suspect]
     Active Substance: GEMCITABINE HYDROCHLORIDE
     Indication: BRAF V600E mutation positive
     Dosage: 1000 MG/M2, CYCLIC (THREE-WEEKLY, ON DAY 1 AND DAY 8)
     Dates: start: 2022
  2. GEMCITABINE HYDROCHLORIDE [Suspect]
     Active Substance: GEMCITABINE HYDROCHLORIDE
     Indication: Neoplasm malignant
  3. CISPLATIN [Suspect]
     Active Substance: CISPLATIN
     Indication: BRAF V600E mutation positive
     Dosage: 20 MG/M2, CYCLIC (THREE-WEEKLY, BOTH ON DAY 1 AND DAY 8)
     Dates: start: 2022
  4. CISPLATIN [Suspect]
     Active Substance: CISPLATIN
     Indication: Neoplasm malignant

REACTIONS (2)
  - Axillary vein thrombosis [Unknown]
  - Subclavian vein thrombosis [Unknown]

NARRATIVE: CASE EVENT DATE: 20220101
